FAERS Safety Report 14194245 (Version 1)
Quarter: 2017Q4

REPORT INFORMATION
  Report Type: Spontaneous
  Country: US (occurrence: US)
  Receive Date: 20171116
  Receipt Date: 20171116
  Transmission Date: 20180321
  Serious: No
  Sender: FDA-Public Use
  Company Number: US-PFIZER INC-2017028627

PATIENT
  Age: 78 Year
  Sex: Female
  Weight: 50 kg

DRUGS (23)
  1. IBRANCE [Suspect]
     Active Substance: PALBOCICLIB
     Indication: BREAST CANCER STAGE IV
     Dosage: 100 MG, DAILY
     Route: 048
  2. CYCLOBENZAPRINE HCL [Concomitant]
     Active Substance: CYCLOBENZAPRINE HYDROCHLORIDE
     Dosage: 10 MG, 3X/DAY (10 MG TABLET TAKE 1 PO TID)
     Route: 048
  3. NEXIUM [Concomitant]
     Active Substance: ESOMEPRAZOLE MAGNESIUM
     Dosage: 20 MG, DAILY (20 MG CAPSULE, DELAYED RELEASE (ENTERIC COATED) TAKE 1 CAPSULE(S) PO DAILY)
     Route: 048
  4. PREDNISONE. [Concomitant]
     Active Substance: PREDNISONE
     Dosage: 10 MG, AS NEEDED (10 MG TABLET TAKE 1 PO AS DIRECTED)
     Route: 048
  5. ARIMIDEX [Concomitant]
     Active Substance: ANASTROZOLE
     Dosage: 1 MG, DAILY
     Route: 048
  6. CALCIUM +D [Concomitant]
     Active Substance: CALCIUM\VITAMIN D
     Dosage: 1 DF, 3X/DAY (500MG-1000 TABLET, CHEWABLE TAKE 1 PO TID)
     Route: 048
  7. MELOXICAM. [Concomitant]
     Active Substance: MELOXICAM
     Dosage: 7.5 MG, DAILY
     Route: 048
  8. PROBIOTIC ACIDOPHILUS [Concomitant]
     Active Substance: LACTOBACILLUS ACIDOPHILUS
     Dosage: UNK, DAILY (300MM-250 CAPSULE TAKE 1 PO DAILY)
     Route: 048
  9. DIPHENHYDRAMINE HCL [Concomitant]
     Active Substance: DIPHENHYDRAMINE HYDROCHLORIDE
     Indication: HYPERSENSITIVITY
     Dosage: 50 MG, AS NEEDED
     Route: 042
  10. PALBOCICLIB [Concomitant]
     Active Substance: PALBOCICLIB
     Dosage: 125 MG, DAILY
     Route: 048
  11. IRON DEXTRAN [Concomitant]
     Active Substance: IRON DEXTRAN
     Dosage: 500 MG, UNK
     Route: 041
  12. HYDROCODONE/ACETAMINOPHEN [Concomitant]
     Active Substance: ACETAMINOPHEN\HYDROCODONE
     Indication: PAIN
     Dosage: UNK, AS NEEDED (HYDROCODONE 10MG/ACETAMINOPHEN325MG TABLET TAKE 1 PO Q4H PRN PAIN)
     Route: 048
  13. FENTANYL. [Concomitant]
     Active Substance: FENTANYL
     Dosage: 50 UG, UNK (50MCG/HR PATCH(ES), TRANSDERMAL TAKE 1 PATCH(ES))
     Route: 062
  14. POTASSIUM CHLORIDE. [Concomitant]
     Active Substance: POTASSIUM CHLORIDE
     Dosage: 20 MEQ, DAILY (20MEQ/15ML LIQUID (ML) TAKE 20 MEQ PO DAILY)
     Route: 048
     Dates: start: 20140326
  15. VALIUM [Concomitant]
     Active Substance: DIAZEPAM
     Dosage: 5 MG, AS NEEDED (5 MG TABLET TAKE 1 PO PRN)
     Route: 048
     Dates: start: 20150318
  16. LIDODERM [Concomitant]
     Active Substance: LIDOCAINE
     Dosage: UNK (TAKE 1 PATCH(ES) TOPICAL DAILY)
     Route: 061
     Dates: start: 20141008
  17. LOMOTIL [Concomitant]
     Active Substance: ATROPINE SULFATE\DIPHENOXYLATE HYDROCHLORIDE
     Dosage: UNK, AS NEEDED (2.5-.025MG TABLET TAKE 1 PO QID PRN)
     Route: 048
     Dates: start: 20140326
  18. METHYLPREDNISOLONE SODIUM SUCCINATE. [Concomitant]
     Active Substance: METHYLPREDNISOLONE SODIUM SUCCINATE
     Indication: HYPERSENSITIVITY
     Dosage: 125 MG, AS NEEDED
     Route: 042
  19. HYDROCORTISONE. [Concomitant]
     Active Substance: HYDROCORTISONE
     Indication: HYPERSENSITIVITY
     Dosage: 1 MG, AS NEEDED
     Route: 042
  20. VITAMIN B12 [Concomitant]
     Active Substance: CYANOCOBALAMIN
     Dosage: 1000 UG, AS NEEDED
     Route: 048
  21. XGEVA [Concomitant]
     Active Substance: DENOSUMAB
     Indication: METASTASES TO BONE
     Dosage: 120 MG, UNK (120 MG AS DIRECTED SUB-Q ADMINISTER IN UPPER ARM, UPPER THIGH, OR ABDOMEN)
     Route: 058
  22. FULVESTRANT. [Concomitant]
     Active Substance: FULVESTRANT
     Dosage: 5 ML, UNK
     Route: 030
  23. IMODIUM A-D [Concomitant]
     Active Substance: LOPERAMIDE HYDROCHLORIDE
     Dosage: UNK, AS NEEDED (1 MG/7.5ML LIQUID (ML) TAKE 5 ML PO PRN)
     Route: 048
     Dates: start: 20140303

REACTIONS (1)
  - Malaise [Unknown]
